FAERS Safety Report 5226896-1 (Version None)
Quarter: 2007Q1

REPORT INFORMATION
  Report Type: 
  Country: None (occurrence: None)
  Receive Date: 20070130
  Receipt Date: 20070116
  Transmission Date: 20070707
  Serious: Yes (Hospitalization)
  Sender: FDA-Public Use
  Company Number: RENA-12088

PATIENT
  Age: 70 Year
  Sex: Male

DRUGS (2)
  1. PHOSBLOCK 250 MG TABLETS [Suspect]
     Indication: HYPERPHOSPHATAEMIA
     Dosage: 0.25 G DAILY PO
     Route: 048
     Dates: start: 20061222
  2. WARFARIN POTASSIUM [Concomitant]

REACTIONS (4)
  - BLOOD PHOSPHORUS INCREASED [None]
  - GASTROINTESTINAL HAEMORRHAGE [None]
  - HAEMORRHAGIC DIATHESIS [None]
  - PROTHROMBIN TIME PROLONGED [None]
